FAERS Safety Report 6355925-7 (Version None)
Quarter: 2009Q3

REPORT INFORMATION
  Report Type: 
  Country: None (occurrence: None)
  Receive Date: 20090914
  Receipt Date: 20090914
  Transmission Date: 20100115
  Serious: Yes (Other)
  Sender: FDA-Public Use
  Company Number: None

PATIENT
  Age: 36 Year
  Sex: Male
  Weight: 108.8633 kg

DRUGS (1)
  1. LYRICA [Suspect]
     Indication: TARSAL TUNNEL SYNDROME
     Dosage: 75MG 3 TIMES A DAY PO
     Route: 048
     Dates: start: 20090821, end: 20090908

REACTIONS (1)
  - HAEMATOCHEZIA [None]
